FAERS Safety Report 5939128-3 (Version None)
Quarter: 2008Q4

REPORT INFORMATION
  Report Type: 
  Country: None (occurrence: None)
  Receive Date: 20081103
  Receipt Date: 20081031
  Transmission Date: 20090506
  Serious: Yes (Other)
  Sender: FDA-Public Use
  Company Number: DE-BRISTOL-MYERS SQUIBB COMPANY-14390579

PATIENT
  Sex: Female

DRUGS (1)
  1. BARACLUDE [Suspect]

REACTIONS (1)
  - DEAFNESS [None]
